FAERS Safety Report 5413442-2 (Version None)
Quarter: 2007Q3

REPORT INFORMATION
  Report Type: 
  Country: None (occurrence: None)
  Receive Date: 20070810
  Receipt Date: 20070727
  Transmission Date: 20080115
  Serious: Yes (Hospitalization)
  Sender: FDA-Public Use
  Company Number: 2004JP002020

PATIENT
  Age: 38 Year
  Sex: Male
  Weight: 49 kg

DRUGS (32)
  1. PROGRAF [Suspect]
     Indication: LUNG TRANSPLANT
     Dosage: SEE IMAGE
     Route: 048
     Dates: start: 20040213, end: 20040305
  2. PROGRAF [Suspect]
     Indication: LUNG TRANSPLANT
     Dosage: SEE IMAGE
     Route: 048
     Dates: start: 20040306, end: 20040506
  3. PROGRAF [Suspect]
     Indication: LUNG TRANSPLANT
     Dosage: SEE IMAGE
     Route: 048
     Dates: start: 20040507, end: 20040804
  4. PROGRAF [Suspect]
     Indication: LUNG TRANSPLANT
     Dosage: SEE IMAGE
     Route: 048
     Dates: start: 20040805, end: 20050127
  5. PROGRAF [Suspect]
     Indication: LUNG TRANSPLANT
     Dosage: SEE IMAGE
     Route: 048
     Dates: start: 20050128, end: 20050714
  6. PROGRAF [Suspect]
     Indication: LUNG TRANSPLANT
     Dosage: SEE IMAGE
     Route: 048
     Dates: start: 20050715, end: 20060202
  7. PROGRAF [Suspect]
     Indication: LUNG TRANSPLANT
     Dosage: SEE IMAGE
     Route: 048
     Dates: start: 20060203
  8. PROGRAF [Suspect]
     Indication: LUNG TRANSPLANT
     Dosage: SEE IMAGE
     Route: 048
     Dates: start: 20060810
  9. PROGRAF [Suspect]
     Indication: LUNG TRANSPLANT
     Dosage: SEE IMAGE
     Route: 048
     Dates: start: 20070205
  10. PROGRAF [Suspect]
     Indication: LUNG TRANSPLANT
     Dosage: 1 MG, /D, IV, NOS
     Route: 042
     Dates: start: 20040206, end: 20040213
  11. PREDNISOLONE [Concomitant]
  12. IMURAN [Suspect]
     Indication: LUNG TRANSPLANT
     Dosage: 2 MG/KG, /D, ORAL; 50 MG, /D, ORAL
     Route: 048
     Dates: start: 20040205, end: 20040625
  13. IMURAN [Suspect]
     Indication: LUNG TRANSPLANT
     Dosage: 2 MG/KG, /D, ORAL; 50 MG, /D, ORAL
     Route: 048
     Dates: start: 20050827, end: 20051027
  14. BISOLVON (BROMHEXINE HYDROCHLORIDE) INHALATION [Concomitant]
  15. ALOTEC (ORCIPRENALINE SULFATE) INHALATION [Concomitant]
  16. FUNGIZONE [Concomitant]
  17. SULFAMETHOXAZOLE + TRIMETHOPRIM [Concomitant]
  18. DENOSINE ^TANABE^ (GANCICLOVIR) CAPSULE [Concomitant]
  19. ALFAROL (ALFACALCIDOL) [Concomitant]
  20. ITRACONAZOLE [Concomitant]
  21. LASIX [Concomitant]
  22. LANSOPRAZOLE [Concomitant]
  23. ZADITEN (KETOFEN FUMARATE) NASAL DROP [Concomitant]
  24. ZANTAC 150 [Concomitant]
  25. AMOBAN (ZOPICLONE) [Concomitant]
  26. ASPARA-CA (ASPARTATE CALCIUM) [Concomitant]
  27. RISEDRONATE SODIUM [Concomitant]
  28. ZOVIRAX [Concomitant]
  29. HOKUNALIN (TULOBUTEROL HYDROCHLORIDE) TAPE [Concomitant]
  30. SPIRIVA (TIOTROIUM BROMIDE) [Concomitant]
  31. MUCOSTA (REBAMIPIDE) [Concomitant]
  32. SEREVENT (SALMETEROL XINAFOATE) INHALATION [Concomitant]

REACTIONS (9)
  - BLOOD ALBUMIN DECREASED [None]
  - BLOOD LACTATE DEHYDROGENASE INCREASED [None]
  - INTERLEUKIN LEVEL INCREASED [None]
  - LYMPHOPROLIFERATIVE DISORDER [None]
  - NO THERAPEUTIC RESPONSE [None]
  - OSTEOMYELITIS [None]
  - PNEUMONIA [None]
  - RESPIRATORY DISORDER [None]
  - TRANSPLANT REJECTION [None]
